FAERS Safety Report 15347272 (Version 3)
Quarter: 2020Q3

REPORT INFORMATION
  Report Type: Spontaneous
  Country: US (occurrence: US)
  Receive Date: 20180904
  Receipt Date: 20200810
  Transmission Date: 20201102
  Serious: No
  Sender: FDA-Public Use
  Company Number: US-SA-2018SA245808

PATIENT

DRUGS (2)
  1. CEREZYME [Suspect]
     Active Substance: IMIGLUCERASE
     Dosage: 2000 DF, QOW
     Route: 041
     Dates: start: 20160629
  2. CEREZYME [Suspect]
     Active Substance: IMIGLUCERASE
     Indication: GAUCHER^S DISEASE
     Dosage: 2000 IU, QOW
     Route: 058
     Dates: start: 20160329

REACTIONS (2)
  - Incorrect route of product administration [Unknown]
  - Product use issue [Unknown]
